FAERS Safety Report 12630696 (Version 1)
Quarter: 2016Q3

REPORT INFORMATION
  Report Type: Spontaneous
  Country: IT (occurrence: IT)
  Receive Date: 20160808
  Receipt Date: 20160808
  Transmission Date: 20161109
  Serious: Yes (Other)
  Sender: FDA-Public Use
  Company Number: IT-ELI_LILLY_AND_COMPANY-IT201607013403

PATIENT
  Age: 74 Year
  Sex: Male

DRUGS (7)
  1. LANTUS [Suspect]
     Active Substance: INSULIN GLARGINE
     Indication: DIABETES MELLITUS
     Dosage: 20 IU, QD
     Route: 058
  2. HUMALOG [Suspect]
     Active Substance: INSULIN LISPRO
     Indication: PRODUCT USED FOR UNKNOWN INDICATION
     Dosage: 19 IU, QD
     Route: 058
  3. LASIX [Concomitant]
     Active Substance: FUROSEMIDE
  4. STILNOX [Concomitant]
     Active Substance: ZOLPIDEM TARTRATE
  5. FLUXUM [Concomitant]
     Active Substance: PARNAPARIN SODIUM
  6. PANTORC [Concomitant]
     Active Substance: PANTOPRAZOLE SODIUM
  7. CARDIOASPIRINA [Concomitant]
     Active Substance: ASPIRIN

REACTIONS (2)
  - Compensatory sweating [Recovered/Resolved]
  - Hypoglycaemia [Recovered/Resolved]

NARRATIVE: CASE EVENT DATE: 20150518
